FAERS Safety Report 6927458-8 (Version None)
Quarter: 2010Q3

REPORT INFORMATION
  Report Type: 
  Country: None (occurrence: None)
  Receive Date: 20100817
  Receipt Date: 20100811
  Transmission Date: 20110219
  Serious: Yes (Hospitalization)
  Sender: FDA-Public Use
  Company Number: US-B.I. PHARMACEUTICALS,INC./RIDGEFIELD-2010-BP-06841BP

PATIENT
  Sex: Female

DRUGS (9)
  1. SPIRIVA [Suspect]
     Indication: EMPHYSEMA
     Dosage: 18 MCG
     Route: 055
     Dates: start: 20080101
  2. ADVAIR DISKUS 100/50 [Concomitant]
     Indication: EMPHYSEMA
  3. XOPONEX [Concomitant]
     Indication: EMPHYSEMA
  4. PROAIR HFA [Concomitant]
     Indication: EMPHYSEMA
  5. TEGRETOL [Concomitant]
     Indication: TRIGEMINAL NEURALGIA
  6. PLAVIX [Concomitant]
     Indication: TRANSIENT ISCHAEMIC ATTACK
  7. LISINOPRIL [Concomitant]
     Indication: HYPERTENSION
  8. SERTRALINE HYDROCHLORIDE [Concomitant]
     Indication: DEPRESSION
  9. VITAMINS [Concomitant]
     Indication: PROPHYLAXIS

REACTIONS (1)
  - INTESTINAL OBSTRUCTION [None]
